FAERS Safety Report 11647942 (Version 1)
Quarter: 2015Q4

REPORT INFORMATION
  Report Type: Spontaneous
  Country: US (occurrence: None)
  Receive Date: 20151020
  Receipt Date: 20151020
  Transmission Date: 20160304
  Serious: Yes (Hospitalization)
  Sender: FDA-Public Use
  Company Number: None

PATIENT
  Age: 76 Year
  Sex: Female
  Weight: 94.8 kg

DRUGS (8)
  1. CHOLESCALCIFEROL [Concomitant]
  2. ALLOPURINOL. [Concomitant]
     Active Substance: ALLOPURINOL
  3. PANTOPRAZOLE [Concomitant]
     Active Substance: PANTOPRAZOLE SODIUM
  4. ASPIRIN. [Concomitant]
     Active Substance: ASPIRIN
  5. VITAMIN E [Concomitant]
     Active Substance: .ALPHA.-TOCOPHEROL
  6. CRANBERRY. [Concomitant]
     Active Substance: CRANBERRY
  7. ZYDELIG [Suspect]
     Active Substance: IDELALISIB
     Indication: CHRONIC LYMPHOCYTIC LEUKAEMIA
     Route: 048
     Dates: start: 20150718, end: 20151011
  8. ZYDELIG [Concomitant]
     Active Substance: IDELALISIB

REACTIONS (3)
  - Fatigue [None]
  - Pneumonitis [None]
  - Pulmonary embolism [None]

NARRATIVE: CASE EVENT DATE: 20151011
